FAERS Safety Report 7904860-9 (Version None)
Quarter: 2011Q4

REPORT INFORMATION
  Report Type: 
  Country: None (occurrence: None)
  Receive Date: 20111109
  Receipt Date: 20111028
  Transmission Date: 20120403
  Serious: Yes (Hospitalization, Other)
  Sender: FDA-Public Use
  Company Number: PHEH2011US08010

PATIENT
  Sex: Female
  Weight: 120 kg

DRUGS (1)
  1. AFINITOR [Suspect]
     Indication: CARCINOID SYNDROME
     Dosage: 10 MG, QD
     Route: 048
     Dates: start: 20091201, end: 20110201

REACTIONS (37)
  - BLOOD CREATINE PHOSPHOKINASE DECREASED [None]
  - GAMMA-GLUTAMYLTRANSFERASE INCREASED [None]
  - BLOOD GLUCOSE INCREASED [None]
  - RED BLOOD CELL COUNT DECREASED [None]
  - BLOOD THYROID STIMULATING HORMONE INCREASED [None]
  - SERUM FERRITIN INCREASED [None]
  - RED CELL DISTRIBUTION WIDTH INCREASED [None]
  - BLOOD CHLORIDE DECREASED [None]
  - GLOMERULAR FILTRATION RATE DECREASED [None]
  - EPIDERMAL GROWTH FACTOR RECEPTOR DECREASED [None]
  - DEHYDRATION [None]
  - RENAL FAILURE [None]
  - BLOOD CREATININE INCREASED [None]
  - OSTEOCALCIN INCREASED [None]
  - BLOOD ALBUMIN DECREASED [None]
  - VITAMIN D DECREASED [None]
  - BLOOD POTASSIUM DECREASED [None]
  - BLOOD CALCIUM DECREASED [None]
  - BLOOD CHROMOGRANIN A INCREASED [None]
  - PROTEIN TOTAL INCREASED [None]
  - HAEMOGLOBIN DECREASED [None]
  - ALBUMIN GLOBULIN RATIO DECREASED [None]
  - RED BLOOD CELL SEDIMENTATION RATE INCREASED [None]
  - C-REACTIVE PROTEIN INCREASED [None]
  - BLOOD ALKALINE PHOSPHATASE INCREASED [None]
  - GLOBULINS INCREASED [None]
  - BLOOD URIC ACID DECREASED [None]
  - BLOOD UREA INCREASED [None]
  - SERUM SEROTONIN INCREASED [None]
  - PLATELET COUNT DECREASED [None]
  - BLOOD CHOLESTEROL DECREASED [None]
  - TRI-IODOTHYRONINE DECREASED [None]
  - MEAN CELL HAEMOGLOBIN DECREASED [None]
  - MEAN CELL HAEMOGLOBIN CONCENTRATION DECREASED [None]
  - LYMPHOCYTE COUNT DECREASED [None]
  - THYROGLOBULIN INCREASED [None]
  - WHITE BLOOD CELL COUNT DECREASED [None]
